FAERS Safety Report 15466620 (Version 2)
Quarter: 2018Q4

REPORT INFORMATION
  Report Type: Report from Study
  Country: US (occurrence: US)
  Receive Date: 20181005
  Receipt Date: 20181025
  Transmission Date: 20190204
  Serious: Yes (Hospitalization, Other)
  Sender: FDA-Public Use
  Company Number: US-BIOGEN-2018BI00629220

PATIENT
  Sex: Female

DRUGS (3)
  1. TECFIDERA [Suspect]
     Active Substance: DIMETHYL FUMARATE
     Dosage: MAINTENANCE DOSE
     Route: 048
     Dates: start: 20180829
  2. TECFIDERA [Suspect]
     Active Substance: DIMETHYL FUMARATE
     Indication: MULTIPLE SCLEROSIS
     Dosage: MAINTENANCE DOSE
     Route: 048
     Dates: start: 20180820
  3. TECFIDERA [Suspect]
     Active Substance: DIMETHYL FUMARATE
     Dosage: MAINTENANCE DOSE
     Route: 048
     Dates: start: 201808

REACTIONS (9)
  - Product dose omission [Unknown]
  - Transient ischaemic attack [Recovered/Resolved]
  - Diarrhoea [Recovered/Resolved]
  - Nausea [Recovered/Resolved]
  - Eructation [Recovered/Resolved]
  - Headache [Not Recovered/Not Resolved]
  - Flushing [Recovered/Resolved]
  - Blindness [Unknown]
  - Vomiting [Recovered/Resolved]
